FAERS Safety Report 5275848-4 (Version None)
Quarter: 2007Q1

REPORT INFORMATION
  Report Type: 
  Country: None (occurrence: None)
  Receive Date: 20070326
  Receipt Date: 20070316
  Transmission Date: 20070707
  Serious: Yes (Hospitalization)
  Sender: FDA-Public Use
  Company Number: US-JNJFOC-20070301777

PATIENT
  Sex: Female

DRUGS (5)
  1. TMC-125 [Suspect]
     Indication: HIV INFECTION
     Route: 048
  2. PREZISTA [Suspect]
     Indication: HIV INFECTION
     Route: 048
  3. RITONAVIR [Concomitant]
     Indication: HIV INFECTION
     Route: 048
  4. TRUVADA [Concomitant]
     Indication: HIV INFECTION
     Route: 048
  5. KALETRA [Concomitant]
     Indication: HIV INFECTION
     Route: 048

REACTIONS (1)
  - HYPERSENSITIVITY [None]
